FAERS Safety Report 5131987-X (Version None)
Quarter: 2006Q4

REPORT INFORMATION
  Report Type: 
  Country: None (occurrence: None)
  Receive Date: 20061017
  Receipt Date: 20061004
  Transmission Date: 20070319
  Serious: Yes (Death, Hospitalization)
  Sender: FDA-Public Use
  Company Number: 2006062484

PATIENT
  Age: 66 Year
  Sex: Female
  Weight: 61.2356 kg

DRUGS (1)
  1. BEXTRA [Suspect]
     Indication: OSTEOARTHRITIS
     Dosage: 10 MG (10 MG, 1 IN 1 D)
     Dates: start: 20040121, end: 20040612

REACTIONS (1)
  - CEREBROVASCULAR ACCIDENT [None]
